FAERS Safety Report 24015072 (Version 1)
Quarter: 2024Q2

REPORT INFORMATION
  Report Type: Spontaneous
  Country: CA (occurrence: CA)
  Receive Date: 20240626
  Receipt Date: 20240626
  Transmission Date: 20240716
  Serious: Yes (Other)
  Sender: FDA-Public Use
  Company Number: CA-009507513-2406CAN007266

PATIENT
  Age: 68 Year
  Sex: Female

DRUGS (2)
  1. KEYTRUDA [Suspect]
     Active Substance: PEMBROLIZUMAB
     Indication: Triple negative breast cancer
     Dosage: UNK, CYCLICAL
     Route: 065
     Dates: start: 20230203
  2. TAXOL [Suspect]
     Active Substance: PACLITAXEL
     Indication: Triple negative breast cancer
     Dosage: CYCLICAL
     Route: 065
     Dates: start: 20230203

REACTIONS (3)
  - Neutropenia [Unknown]
  - Rash [Recovered/Resolved]
  - Mucosal inflammation [Recovered/Resolved]
